FAERS Safety Report 9336962 (Version 5)
Quarter: 2014Q2

REPORT INFORMATION
  Report Type: Spontaneous
  Country: US (occurrence: US)
  Receive Date: 20130607
  Receipt Date: 20140409
  Transmission Date: 20141212
  Serious: Yes (Hospitalization, Other)
  Sender: FDA-Public Use
  Company Number: US-009507513-1305USA017838

PATIENT
  Sex: Female
  Weight: 88.44 kg

DRUGS (3)
  1. FOSAMAX [Suspect]
     Indication: OSTEOPOROSIS
     Dosage: 70 MG, UNK
     Route: 048
     Dates: end: 200504
  2. FOSAMAX PLUS D [Suspect]
     Indication: OSTEOPOROSIS
     Dosage: 70 MG, UNK
     Route: 048
     Dates: start: 200504, end: 200802
  3. ALENDRONATE SODIUM [Suspect]
     Indication: OSTEOPOROSIS
     Dosage: 70 MG, UNK
     Route: 048
     Dates: start: 200802, end: 201107

REACTIONS (57)
  - Ankle fracture [Unknown]
  - Type V hyperlipidaemia [Unknown]
  - Anxiety [Unknown]
  - Vascular calcification [Unknown]
  - Fibroma [Unknown]
  - Temporomandibular joint syndrome [Unknown]
  - Intervertebral disc disorder [Unknown]
  - Myelopathy [Unknown]
  - Aortic arteriosclerosis [Unknown]
  - Hypoglycaemia [Unknown]
  - Hyperkalaemia [Unknown]
  - Diabetic neuropathy [Unknown]
  - Adverse event [Unknown]
  - Hypertonic bladder [Unknown]
  - Malnutrition [Unknown]
  - Staphylococcal infection [Unknown]
  - Bone density decreased [Unknown]
  - Bacterial test positive [Unknown]
  - Fall [Unknown]
  - Medical device complication [Unknown]
  - Blood thyroid stimulating hormone increased [Unknown]
  - Fall [Unknown]
  - Anaemia [Unknown]
  - Asthenia [Unknown]
  - Musculoskeletal pain [Unknown]
  - Gastrooesophageal reflux disease [Unknown]
  - Intramedullary rod insertion [Unknown]
  - Intramedullary rod insertion [Unknown]
  - Hip fracture [Recovering/Resolving]
  - Renal failure chronic [Not Recovered/Not Resolved]
  - Hip arthroplasty [Unknown]
  - Femur fracture [Unknown]
  - Renal failure acute [Unknown]
  - Femur fracture [Unknown]
  - Femur fracture [Unknown]
  - Uterine leiomyoma [Unknown]
  - Ovarian germ cell teratoma benign [Unknown]
  - Osteoarthritis [Unknown]
  - Parkinson^s disease [Unknown]
  - Tendonitis [Unknown]
  - Osteoarthritis [Unknown]
  - Spinal osteoarthritis [Unknown]
  - Spinal disorder [Unknown]
  - Diabetes mellitus inadequate control [Unknown]
  - Peripheral vascular disorder [Unknown]
  - Major depression [Unknown]
  - Lumbar spinal stenosis [Unknown]
  - Aortic disorder [Unknown]
  - Aortic calcification [Unknown]
  - Leiomyoma [Unknown]
  - Gallbladder operation [Unknown]
  - Weight increased [Unknown]
  - Dyspnoea [Unknown]
  - Fall [Unknown]
  - Essential hypertension [Unknown]
  - Cholecystitis [Unknown]
  - Sleep apnoea syndrome [Unknown]
